FAERS Safety Report 4623217-X (Version None)
Quarter: 2005Q1

REPORT INFORMATION
  Report Type: 
  Country: None (occurrence: None)
  Receive Date: 20050330
  Receipt Date: 20050318
  Transmission Date: 20050727
  Serious: Yes (Hospitalization)
  Sender: FDA-Public Use
  Company Number: US-2005-002923

PATIENT
  Age: 81 Year
  Sex: Female
  Weight: 45.4 kg

DRUGS (6)
  1. BETASERON [Suspect]
     Indication: RELAPSING-REMITTING MULTIPLE SCLEROSIS
     Dosage: 8 MIU, EVERY 2D, SUBCUTANEOUS
     Route: 058
     Dates: start: 19950801
  2. LIORESAL [Concomitant]
  3. MYLANTA (MAGNESIUM HYDROXIDE, SIMETICONE, ALUMINIUM HYDROXIDE GEL, DRI [Concomitant]
  4. ASACOL [Concomitant]
  5. LASIX [Concomitant]
  6. K-DUR 10 [Concomitant]

REACTIONS (4)
  - CELLULITIS [None]
  - INJECTION SITE ERYTHEMA [None]
  - INJECTION SITE PRURITUS [None]
  - INJECTION SITE RASH [None]
